FAERS Safety Report 5568813-0 (Version None)
Quarter: 2007Q4

REPORT INFORMATION
  Report Type: 
  Country: None (occurrence: None)
  Receive Date: 20071220
  Receipt Date: 20070123
  Transmission Date: 20080405
  Serious: No
  Sender: FDA-Public Use
  Company Number: A0636713A

PATIENT
  Age: 83 Year
  Sex: Male

DRUGS (5)
  1. AVODART [Suspect]
     Indication: PROSTATIC DISORDER
     Dosage: .5MG PER DAY
     Route: 048
     Dates: start: 20061001
  2. FLOMAX [Concomitant]
  3. MEVACOR [Concomitant]
  4. PEPCID [Concomitant]
  5. THYROID EXTRACT [Concomitant]

REACTIONS (1)
  - ECZEMA [None]
